FAERS Safety Report 18428400 (Version 2)
Quarter: 2020Q4

REPORT INFORMATION
  Report Type: Spontaneous
  Country: US (occurrence: US)
  Receive Date: 20201026
  Receipt Date: 20201221
  Transmission Date: 20210114
  Serious: No
  Sender: FDA-Public Use
  Company Number: US-BIOHAVEN PHARMACEUTICALS-2020BHV00345

PATIENT
  Age: 71 Year
  Sex: Female
  Weight: 72.11 kg

DRUGS (6)
  1. NURTEC ODT [Suspect]
     Active Substance: RIMEGEPANT SULFATE
     Dosage: 75 MG, AS NEEDED
     Route: 060
     Dates: start: 2020
  2. NURTEC ODT [Suspect]
     Active Substance: RIMEGEPANT SULFATE
     Indication: MIGRAINE
     Dosage: 75 MG, AS NEEDED
     Route: 060
     Dates: start: 20200721
  3. BOTOX [Concomitant]
     Active Substance: ONABOTULINUMTOXINA
  4. IBUPROFEN. [Concomitant]
     Active Substance: IBUPROFEN
     Dosage: UNK, AS NEEDED
  5. UNSPECIFIED VITAMINS [Concomitant]
     Active Substance: VITAMINS
  6. TYLENOL [Concomitant]
     Active Substance: ACETAMINOPHEN
     Dosage: UNK, AS NEEDED

REACTIONS (4)
  - Oral discomfort [Not Recovered/Not Resolved]
  - Oral mucosal blistering [Recovered/Resolved]
  - Paraesthesia oral [Not Recovered/Not Resolved]
  - Drug ineffective [Recovered/Resolved]

NARRATIVE: CASE EVENT DATE: 2020
